FAERS Safety Report 25983488 (Version 1)
Quarter: 2025Q4

REPORT INFORMATION
  Report Type: Spontaneous
  Country: CN (occurrence: CN)
  Receive Date: 20251031
  Receipt Date: 20251031
  Transmission Date: 20260119
  Serious: Yes (Hospitalization, Other)
  Sender: RANBAXY
  Company Number: CN-SUN PHARMACEUTICAL INDUSTRIES INC-2025R1-534151

PATIENT
  Age: 31 Year
  Sex: Male

DRUGS (3)
  1. DIGOXIN [Suspect]
     Active Substance: DIGOXIN
     Indication: Coarctation of the aorta
     Dosage: UNK
     Route: 048
  2. FUROSEMIDE [Suspect]
     Active Substance: FUROSEMIDE
     Indication: Coarctation of the aorta
     Dosage: UNK
     Route: 042
  3. ISOSORBIDE [Suspect]
     Active Substance: ISOSORBIDE
     Indication: Coarctation of the aorta
     Dosage: UNK
     Route: 042

REACTIONS (3)
  - Condition aggravated [Unknown]
  - Treatment failure [Unknown]
  - Ejection fraction [Unknown]
